FAERS Safety Report 23614356 (Version 1)
Quarter: 2024Q1

REPORT INFORMATION
  Report Type: Report from Study
  Country: FR (occurrence: FR)
  Receive Date: 20240311
  Receipt Date: 20240311
  Transmission Date: 20240410
  Serious: Yes (Other)
  Sender: FDA-Public Use
  Company Number: FR-JNJFOC-20171011325

PATIENT
  Age: 74 Year
  Sex: Male

DRUGS (4)
  1. IBRUTINIB [Suspect]
     Active Substance: IBRUTINIB
     Indication: Chronic lymphocytic leukaemia
     Route: 048
     Dates: start: 20170912
  2. IBRUTINIB [Suspect]
     Active Substance: IBRUTINIB
     Indication: Chronic lymphocytic leukaemia
     Route: 048
     Dates: start: 20170710
  3. IBRUTINIB [Suspect]
     Active Substance: IBRUTINIB
     Indication: Chronic lymphocytic leukaemia
     Route: 048
     Dates: start: 20170804, end: 20170904
  4. IBRUTINIB [Suspect]
     Active Substance: IBRUTINIB
     Indication: Chronic lymphocytic leukaemia
     Route: 048
     Dates: start: 20170912, end: 20220725

REACTIONS (24)
  - Erysipelas [Recovered/Resolved]
  - Arrhythmia [Not Recovered/Not Resolved]
  - Neutropenia [Recovered/Resolved]
  - Pyrexia [Recovered/Resolved]
  - Myalgia [Recovered/Resolved]
  - Limb injury [Recovered/Resolved]
  - Asthenia [Recovered/Resolved]
  - Hyperthermia [Unknown]
  - White blood cell count increased [Recovered/Resolved]
  - Lymphocytosis [Recovered/Resolved]
  - Oedema peripheral [Recovered/Resolved]
  - Cough [Recovered/Resolved]
  - Otitis media [Recovered/Resolved]
  - Haematuria [Recovered/Resolved]
  - Muscle spasms [Recovered/Resolved]
  - Lung disorder [Recovered/Resolved]
  - Bronchiectasis [Recovering/Resolving]
  - Intestinal obstruction [Recovered/Resolved]
  - Ear haemorrhage [Recovered/Resolved]
  - Haemoptysis [Recovered/Resolved]
  - Ecchymosis [Recovered/Resolved]
  - Bronchitis [Recovered/Resolved]
  - Wound [Recovered/Resolved]
  - Ear infection [Recovered/Resolved]

NARRATIVE: CASE EVENT DATE: 20170711
